FAERS Safety Report 7179758-7 (Version None)
Quarter: 2010Q4

REPORT INFORMATION
  Report Type: 
  Country: None (occurrence: None)
  Receive Date: 20101221
  Receipt Date: 20101207
  Transmission Date: 20110411
  Serious: Yes (Death)
  Sender: FDA-Public Use
  Company Number: JP-ABBOTT-10P-087-0692758-00

PATIENT
  Age: 81 Year
  Sex: Male

DRUGS (9)
  1. LEUPROLIDE ACETATE [Suspect]
     Indication: PROSTATE CANCER STAGE III
     Route: 058
     Dates: start: 20070424, end: 20080919
  2. LEUPLIN FOR INJECTION 3.75 MG [Suspect]
     Indication: PROSTATE CANCER STAGE III
     Route: 058
     Dates: start: 20070201, end: 20070327
  3. BICALUTAMIDE [Concomitant]
     Indication: PROSTATE CANCER STAGE III
     Route: 048
     Dates: end: 20081121
  4. METHYCOBAL [Concomitant]
     Indication: NEUROPATHY PERIPHERAL
     Dates: end: 20081121
  5. ISODINE [Concomitant]
     Indication: INFECTION PROPHYLAXIS
     Dosage: ROUTE:  OROPHARINGEAL
     Dates: end: 20081121
  6. MAGNESIUM OXIDE [Concomitant]
     Indication: CONSTIPATION
     Route: 048
     Dates: end: 20081121
  7. TSUMURA DAIKENTYUTO [Concomitant]
     Indication: CONSTIPATION
     Route: 048
     Dates: end: 20081121
  8. COSPANON [Concomitant]
     Indication: GASTROINTESTINAL DISORDER
     Route: 048
     Dates: end: 20081121
  9. COSPANON [Concomitant]
     Route: 048
     Dates: end: 20081121

REACTIONS (2)
  - GASTRIC CANCER RECURRENT [None]
  - HOT FLUSH [None]
